FAERS Safety Report 8795489 (Version 1)
Quarter: 2012Q4

REPORT INFORMATION
  Report Type: 
  Country: ZA (occurrence: ZA)
  Receive Date: 20120917
  Receipt Date: 20120917
  Transmission Date: 20130627
  Serious: Yes (Death)
  Sender: FDA-Public Use
  Company Number: ZA-ROCHE-1130011

PATIENT
  Sex: Male

DRUGS (6)
  1. MIRCERA [Suspect]
     Indication: PRODUCT USED FOR UNKNOWN INDICATION
     Route: 058
     Dates: start: 201206
  2. 1-ALPHA [Concomitant]
     Route: 065
  3. EPILIM [Concomitant]
     Dosage: reported as Epilim CR
     Route: 065
  4. TITRALAC [Concomitant]
     Route: 065
  5. CALTRATE [Concomitant]
     Route: 065
  6. LASIX [Concomitant]
     Route: 065

REACTIONS (1)
  - Cardiac failure [Fatal]
